FAERS Safety Report 7617907-4 (Version None)
Quarter: 2011Q3

REPORT INFORMATION
  Report Type: 
  Country: None (occurrence: None)
  Receive Date: 20110718
  Receipt Date: 20110704
  Transmission Date: 20111222
  Serious: Yes (Other)
  Sender: FDA-Public Use
  Company Number: PHHY2011RU61227

PATIENT
  Sex: Female

DRUGS (3)
  1. ARAVA [Concomitant]
     Dosage: 20 MG, UNK
  2. METHOTREXATE [Concomitant]
     Dosage: UNK
  3. ZOLEDRONOC ACID [Suspect]
     Indication: OSTEOPOROSIS
     Dosage: UNK UKN, UNK
     Route: 042
     Dates: start: 20110505

REACTIONS (6)
  - SWELLING [None]
  - RED BLOOD CELL SEDIMENTATION RATE INCREASED [None]
  - INFLUENZA LIKE ILLNESS [None]
  - ARTHRALGIA [None]
  - RESPIRATORY TRACT INFECTION VIRAL [None]
  - PYREXIA [None]
